FAERS Safety Report 8552698-4 (Version None)
Quarter: 2012Q3

REPORT INFORMATION
  Report Type: 
  Country: None (occurrence: None)
  Receive Date: 20120731
  Receipt Date: 20120724
  Transmission Date: 20120928
  Serious: No
  Sender: FDA-Public Use
  Company Number: US-PFIZER INC-2012179288

PATIENT
  Sex: Male

DRUGS (1)
  1. LIPITOR [Suspect]
     Indication: PLAQUE SHIFT
     Dosage: UNK, 1X/DAY
     Route: 048
     Dates: start: 20050101, end: 20120723

REACTIONS (2)
  - ALOPECIA [None]
  - EMOTIONAL DISORDER [None]
